FAERS Safety Report 24685045 (Version 3)
Quarter: 2025Q1

REPORT INFORMATION
  Report Type: Spontaneous
  Country: US (occurrence: US)
  Receive Date: 20241202
  Receipt Date: 20250123
  Transmission Date: 20250409
  Serious: Yes (Hospitalization)
  Sender: PIRAMAL
  Company Number: US-PCCINC-2024-PPL-000880

PATIENT

DRUGS (1)
  1. GABLOFEN [Suspect]
     Active Substance: BACLOFEN
     Indication: Product used for unknown indication

REACTIONS (4)
  - Erythema [Unknown]
  - Swelling [Unknown]
  - Pyrexia [Unknown]
  - Infection [Not Recovered/Not Resolved]
